FAERS Safety Report 5186970-5 (Version None)
Quarter: 2006Q4

REPORT INFORMATION
  Report Type: 
  Country: None (occurrence: None)
  Receive Date: 20061220
  Receipt Date: 20061026
  Transmission Date: 20070319
  Serious: No
  Sender: FDA-Public Use
  Company Number: US-AMGEN-KDL198364

PATIENT
  Sex: Female

DRUGS (1)
  1. ENBREL [Suspect]
     Indication: RHEUMATOID ARTHRITIS
     Dates: start: 20000301

REACTIONS (5)
  - INCREASED TENDENCY TO BRUISE [None]
  - LYMPHOCYTE COUNT INCREASED [None]
  - NAIL DISCOLOURATION [None]
  - NAIL DISORDER [None]
  - NEUTROPHIL COUNT DECREASED [None]
